FAERS Safety Report 7304306-8 (Version None)
Quarter: 2011Q1

REPORT INFORMATION
  Report Type: 
  Country: None (occurrence: None)
  Receive Date: 20110221
  Receipt Date: 20110210
  Transmission Date: 20110831
  Serious: Yes (Hospitalization)
  Sender: FDA-Public Use
  Company Number: US-ASTRAZENECA-2011SE08194

PATIENT
  Age: 35834 Day
  Sex: Female

DRUGS (6)
  1. SEROQUEL [Suspect]
     Route: 048
  2. BENTYL [Concomitant]
     Indication: ABDOMINAL DISCOMFORT
     Route: 065
  3. LIBRAX [Concomitant]
     Dosage: THREE TIMES A DAY
     Route: 065
  4. POTASSIUM [Concomitant]
     Indication: SUPPLEMENTATION THERAPY
     Dosage: AS NEEDED
     Route: 065
  5. ATOVAN [Concomitant]
     Indication: DEPRESSION
     Route: 065
  6. LASIX [Concomitant]
     Indication: DIURETIC THERAPY
     Dosage: AS NEEDED
     Route: 065

REACTIONS (1)
  - NEOPLASM MALIGNANT [None]
